FAERS Safety Report 16309113 (Version 1)
Quarter: 2019Q2

REPORT INFORMATION
  Report Type: Spontaneous
  Country: US (occurrence: US)
  Receive Date: 20190514
  Receipt Date: 20190514
  Transmission Date: 20190711
  Serious: No
  Sender: FDA-Public Use
  Company Number: PHEH2019US020381

PATIENT
  Sex: Male

DRUGS (1)
  1. GLEEVEC [Suspect]
     Active Substance: IMATINIB MESYLATE
     Indication: CHRONIC MYELOID LEUKAEMIA
     Dosage: 800 MG, QD
     Route: 048
     Dates: start: 200705, end: 2008

REACTIONS (7)
  - Scoliosis [Unknown]
  - Weight increased [Unknown]
  - Fatigue [Unknown]
  - Rash [Unknown]
  - Ankle fracture [Unknown]
  - Pruritus [Unknown]
  - Libido decreased [Unknown]
